FAERS Safety Report 25255972 (Version 3)
Quarter: 2025Q3

REPORT INFORMATION
  Report Type: Report from Study
  Country: US (occurrence: US)
  Receive Date: 20250430
  Receipt Date: 20250903
  Transmission Date: 20251021
  Serious: No
  Sender: ACADIA PHARMACEUTICALS
  Company Number: US-ACADIA PHARMACEUTICALS INC.-ACA-2025-PIM-004862

PATIENT
  Sex: Male

DRUGS (34)
  1. NUPLAZID [Suspect]
     Active Substance: PIMAVANSERIN TARTRATE
     Indication: Parkinson^s disease
     Dosage: 34 MILLIGRAM, QD
     Route: 048
     Dates: start: 20190912
  2. ACETAMINOPHEN [Concomitant]
     Active Substance: ACETAMINOPHEN
  3. ASPIRIN [Concomitant]
     Active Substance: ASPIRIN
  4. BENADRYL [Concomitant]
     Active Substance: DIPHENHYDRAMINE HYDROCHLORIDE
  5. BENICAR HCT [Concomitant]
     Active Substance: HYDROCHLOROTHIAZIDE\OLMESARTAN MEDOXOMIL
  6. BUMETANIDE [Concomitant]
     Active Substance: BUMETANIDE
  7. CARVEDILOL [Concomitant]
     Active Substance: CARVEDILOL
  8. CLONAZEPAM [Concomitant]
     Active Substance: CLONAZEPAM
  9. DIVALPROEX SODIUM [Concomitant]
     Active Substance: DIVALPROEX SODIUM
  10. DONEPEZIL [Concomitant]
     Active Substance: DONEPEZIL
  11. DORZOLAMIDE [Concomitant]
     Active Substance: DORZOLAMIDE
  12. ENTRESTO [Concomitant]
     Active Substance: SACUBITRIL\VALSARTAN
  13. EPLERENONE [Concomitant]
     Active Substance: EPLERENONE
  14. ESOMEPRAZOLE MAGNESIUM [Concomitant]
     Active Substance: ESOMEPRAZOLE MAGNESIUM
  15. FARXIGA [Concomitant]
     Active Substance: DAPAGLIFLOZIN PROPANEDIOL
  16. FINASTERIDE [Concomitant]
     Active Substance: FINASTERIDE
  17. FLUOXETINE [Concomitant]
     Active Substance: FLUOXETINE HYDROCHLORIDE
  18. LATANOPROST [Concomitant]
     Active Substance: LATANOPROST
  19. LOSARTAN POTASSIUM [Concomitant]
     Active Substance: LOSARTAN POTASSIUM
  20. MELATONIN [Concomitant]
     Active Substance: MELATONIN
  21. MEMANTINE [Concomitant]
     Active Substance: MEMANTINE
  22. METFORMIN [Concomitant]
     Active Substance: METFORMIN HYDROCHLORIDE
  23. VITAMINS [Concomitant]
     Active Substance: VITAMINS
  24. MYRBETRIQ [Concomitant]
     Active Substance: MIRABEGRON
  25. OMEPRAZOLE [Concomitant]
     Active Substance: OMEPRAZOLE
  26. PANTOPRAZOLE [Concomitant]
     Active Substance: PANTOPRAZOLE
  27. PATADAY [Concomitant]
     Active Substance: OLOPATADINE HYDROCHLORIDE
  28. QUETIAPINE [Concomitant]
     Active Substance: QUETIAPINE
  29. RESTASIS [Concomitant]
     Active Substance: CYCLOSPORINE
  30. TAMSULOSIN [Concomitant]
     Active Substance: TAMSULOSIN
  31. TUMS ULTRA [Concomitant]
     Active Substance: CALCIUM CARBONATE
  32. VITAMIN D NOS [Concomitant]
     Active Substance: CHOLECALCIFEROL\ERGOCALCIFEROL
  33. VYZULTA [Concomitant]
     Active Substance: LATANOPROSTENE BUNOD
  34. MIRALAX [Concomitant]
     Active Substance: POLYETHYLENE GLYCOL 3350

REACTIONS (4)
  - Hyperhidrosis [Unknown]
  - Asthenia [Unknown]
  - Unevaluable event [Unknown]
  - Product dose omission issue [Unknown]
